FAERS Safety Report 8574903-0 (Version None)
Quarter: 2012Q3

REPORT INFORMATION
  Report Type: 
  Country: None (occurrence: None)
  Receive Date: 20120807
  Receipt Date: 20120726
  Transmission Date: 20120928
  Serious: Yes (Death, Hospitalization, Other)
  Sender: FDA-Public Use
  Company Number: MX-SANOFI-AVENTIS-2012SA053149

PATIENT
  Age: 75 Year
  Sex: Female

DRUGS (1)
  1. LANTUS [Suspect]
     Route: 058
     Dates: start: 20100101, end: 20120513

REACTIONS (7)
  - HEAD INJURY [None]
  - HYPERGLYCAEMIA [None]
  - ONCOLOGIC COMPLICATION [None]
  - FALL [None]
  - INFLUENZA [None]
  - LUNG NEOPLASM MALIGNANT [None]
  - COUGH [None]
